FAERS Safety Report 6308545-4 (Version None)
Quarter: 2009Q3

REPORT INFORMATION
  Report Type: 
  Country: None (occurrence: None)
  Receive Date: 20090813
  Receipt Date: 20090730
  Transmission Date: 20100115
  Serious: Yes (Other)
  Sender: FDA-Public Use
  Company Number: GB-MYLANLABS-2009S1013511

PATIENT
  Age: 52 Year
  Sex: Male
  Weight: 107.95 kg

DRUGS (6)
  1. FLUOXETINE [Suspect]
     Indication: DEPRESSION
     Route: 048
     Dates: start: 20080405
  2. MIRTAZAPINE [Suspect]
     Indication: DEPRESSION
     Route: 048
     Dates: start: 20081101, end: 20081231
  3. DIAZEPAM [Concomitant]
     Indication: ANXIETY
     Route: 048
  4. RAMIPRIL [Concomitant]
     Indication: HYPERTENSION
     Route: 048
  5. TEMAZEPAM [Concomitant]
     Indication: INSOMNIA
     Route: 048
  6. VERAPAMIL [Concomitant]
     Indication: HYPERTENSION
     Route: 048

REACTIONS (2)
  - GAIT DISTURBANCE [None]
  - OEDEMA PERIPHERAL [None]
